FAERS Safety Report 6405821-1 (Version None)
Quarter: 2009Q4

REPORT INFORMATION
  Report Type: 
  Country: None (occurrence: None)
  Receive Date: 20091019
  Receipt Date: 20091014
  Transmission Date: 20100525
  Serious: No
  Sender: FDA-Public Use
  Company Number: GB-MERCK-0909GBR00077M

PATIENT
  Age: 41 Year
  Sex: Female

DRUGS (2)
  1. PRINIVIL [Suspect]
     Indication: CARDIOMYOPATHY
     Route: 065
  2. DIURETIC (UNSPECIFIED) [Concomitant]
     Indication: CARDIOMYOPATHY
     Route: 065

REACTIONS (3)
  - DRUG EXPOSURE DURING PREGNANCY [None]
  - DYSPNOEA [None]
  - PREMATURE BABY [None]
